FAERS Safety Report 7071071-1 (Version None)
Quarter: 2010Q4

REPORT INFORMATION
  Report Type: 
  Country: None (occurrence: None)
  Receive Date: 20101027
  Receipt Date: 20101027
  Transmission Date: 20110411
  Serious: No
  Sender: FDA-Public Use
  Company Number: None

PATIENT
  Sex: Male
  Weight: 6.804 kg

DRUGS (2)
  1. HUMPHREY'S TEETHING PELLETS HUMPHREYS PHARMACAL INC. [Suspect]
     Dosage: 1-3 PELLETS 2 HRS UP TO 4X/DA PO
     Route: 048
     Dates: start: 20101013, end: 20101025
  2. HYLAND'S TEETHING TABLETS [Suspect]
     Indication: TEETHING
     Dates: start: 20101016, end: 20101016

REACTIONS (3)
  - FATIGUE [None]
  - FLUSHING [None]
  - LETHARGY [None]
